FAERS Safety Report 5380169-5 (Version None)
Quarter: 2007Q3

REPORT INFORMATION
  Report Type: 
  Country: None (occurrence: None)
  Receive Date: 20070706
  Receipt Date: 20070508
  Transmission Date: 20080115
  Serious: No
  Sender: FDA-Public Use
  Company Number: A0650443A

PATIENT
  Age: 50 Year
  Sex: Female

DRUGS (5)
  1. TYKERB [Suspect]
     Indication: BREAST CANCER
     Dosage: 5TAB PER DAY
     Route: 048
     Dates: start: 20070424
  2. DOXIL [Concomitant]
  3. SYNTHROID [Concomitant]
  4. ZOLOFT [Concomitant]
  5. OXYCONTIN [Concomitant]

REACTIONS (2)
  - DIARRHOEA [None]
  - DYSPEPSIA [None]
